FAERS Safety Report 5448998-7 (Version None)
Quarter: 2007Q3

REPORT INFORMATION
  Report Type: 
  Country: None (occurrence: None)
  Receive Date: 20070911
  Receipt Date: 20070905
  Transmission Date: 20080115
  Serious: Yes (Hospitalization)
  Sender: FDA-Public Use
  Company Number: JP-ASTRAZENECA-2007AP05598

PATIENT
  Age: 53 Year
  Sex: Male

DRUGS (1)
  1. PULMICORT [Suspect]
     Indication: ASTHMA
     Route: 055
     Dates: start: 20070824

REACTIONS (1)
  - BLOOD PRESSURE DECREASED [None]
